FAERS Safety Report 25361792 (Version 2)
Quarter: 2025Q2

REPORT INFORMATION
  Report Type: Spontaneous
  Country: HR (occurrence: HR)
  Receive Date: 20250527
  Receipt Date: 20250602
  Transmission Date: 20250716
  Serious: Yes (Hospitalization, Other)
  Sender: MERCK SHARP & DOHME LLC
  Company Number: HR-009507513-2288479

PATIENT
  Sex: Male

DRUGS (6)
  1. PEMBROLIZUMAB [Suspect]
     Active Substance: PEMBROLIZUMAB
     Indication: Non-small cell lung cancer stage IV
     Dates: start: 20230303
  2. PACLITAXEL [Suspect]
     Active Substance: PACLITAXEL
     Indication: Non-small cell lung cancer stage IV
     Dates: start: 20230303
  3. Co-Perineva [Concomitant]
  4. MOXONIDINE [Concomitant]
     Active Substance: MOXONIDINE
  5. ATENOLOL [Concomitant]
     Active Substance: ATENOLOL
  6. CARBOPLATIN [Suspect]
     Active Substance: CARBOPLATIN
     Indication: Non-small cell lung cancer stage IV
     Dates: start: 20230303

REACTIONS (4)
  - Hyponatraemia [Unknown]
  - Enterocolitis [Unknown]
  - Pulmonary mass [Unknown]
  - Radiotherapy [Unknown]

NARRATIVE: CASE EVENT DATE: 20240101
